FAERS Safety Report 5838910-0 (Version None)
Quarter: 2008Q3

REPORT INFORMATION
  Report Type: 
  Country: None (occurrence: None)
  Receive Date: 20080808
  Receipt Date: 20080731
  Transmission Date: 20090109
  Serious: Yes (Other)
  Sender: FDA-Public Use
  Company Number: PHHY2008IL14247

PATIENT
  Age: 70 Year
  Sex: Female

DRUGS (6)
  1. GLEEVEC [Suspect]
     Indication: CHRONIC MYELOID LEUKAEMIA
     Dosage: 400 MG/DAY
     Route: 048
  2. LORAZEPAM [Concomitant]
  3. LANSOPRAZOLE [Concomitant]
  4. ATORVASTATIN [Concomitant]
  5. OMEPRAZOLE [Concomitant]
  6. METOPROLOL FUMARATE [Concomitant]

REACTIONS (3)
  - AORTIC VALVE STENOSIS [None]
  - ECHOCARDIOGRAM ABNORMAL [None]
  - PULMONARY HYPERTENSION [None]
